FAERS Safety Report 6805181-8 (Version None)
Quarter: 2010Q2

REPORT INFORMATION
  Report Type: 
  Country: None (occurrence: None)
  Receive Date: 20100628
  Receipt Date: 20070924
  Transmission Date: 20101027
  Serious: No
  Sender: FDA-Public Use
  Company Number: US-PFIZER INC-2007079905

PATIENT
  Sex: Male
  Weight: 115 kg

DRUGS (8)
  1. GENOTROPIN [Suspect]
     Indication: GROWTH HORMONE DEFICIENCY
     Dosage: DAILY
     Dates: start: 20070716, end: 20070924
  2. TESTOSTERONE [Interacting]
     Indication: HYPOGONADISM
     Dosage: 500MG
     Dates: start: 20070501
  3. ATENOLOL [Concomitant]
     Indication: HYPERTENSION
  4. LISINOPRIL [Concomitant]
     Indication: HYPERTENSION
  5. DARVOCET-N 100 [Concomitant]
  6. BETAMETHASONE [Concomitant]
     Indication: RASH
     Route: 061
  7. GUAIFENESIN [Concomitant]
  8. MULTI-VITAMINS [Concomitant]

REACTIONS (12)
  - CHEST DISCOMFORT [None]
  - DRUG INTERACTION [None]
  - DRY MOUTH [None]
  - DYSPNOEA [None]
  - HEADACHE [None]
  - HYPERHIDROSIS [None]
  - HYPERSENSITIVITY [None]
  - HYPERTENSION [None]
  - INSOMNIA [None]
  - NERVOUSNESS [None]
  - PYREXIA [None]
  - TREMOR [None]
